FAERS Safety Report 8195319-5 (Version None)
Quarter: 2012Q1

REPORT INFORMATION
  Report Type: 
  Country: None (occurrence: None)
  Receive Date: 20120308
  Receipt Date: 20120305
  Transmission Date: 20120608
  Serious: Yes (Congenital Anomaly)
  Sender: FDA-Public Use
  Company Number: US-GLAXOSMITHKLINE-A0930792A

PATIENT
  Sex: Male
  Weight: 3.6 kg

DRUGS (3)
  1. MULTI-VITAMINS [Concomitant]
  2. TYLENOL [Concomitant]
  3. PAXIL [Suspect]
     Indication: DEPRESSION
     Dosage: 20MG PER DAY
     Route: 064

REACTIONS (3)
  - FOETAL EXPOSURE DURING PREGNANCY [None]
  - HYDROCEPHALUS [None]
  - MACROCEPHALY [None]
